FAERS Safety Report 7850467-1 (Version None)
Quarter: 2011Q4

REPORT INFORMATION
  Report Type: 
  Country: None (occurrence: None)
  Receive Date: 20111026
  Receipt Date: 20111026
  Transmission Date: 20120403
  Serious: Yes (Hospitalization, Other)
  Sender: FDA-Public Use
  Company Number: None

PATIENT
  Age: 60 Year
  Sex: Female
  Weight: 43.091 kg

DRUGS (1)
  1. DETROL [Suspect]
     Indication: POLLAKIURIA
     Dates: start: 20111024, end: 20111025

REACTIONS (4)
  - INSOMNIA [None]
  - RASH [None]
  - PRURITUS [None]
  - DISCOMFORT [None]
